FAERS Safety Report 8746162 (Version 2)
Quarter: 2012Q4

REPORT INFORMATION
  Report Type: 
  Country: US (occurrence: US)
  Receive Date: 20120827
  Receipt Date: 20121004
  Transmission Date: 20130627
  Serious: Yes (Other)
  Sender: FDA-Public Use
  Company Number: PHEH2012US016388

PATIENT
  Sex: Female

DRUGS (9)
  1. DIOVAN [Suspect]
  2. INSULIN [Suspect]
  3. CARVEDILOL [Concomitant]
  4. DIGOXIN [Concomitant]
  5. METFORMIN [Concomitant]
  6. LEVOTHYROXINE [Concomitant]
  7. PAROXETIN [Concomitant]
  8. SLEEP AID [Concomitant]
  9. CHOLESTEROL MEDICINE [Concomitant]

REACTIONS (5)
  - Blood glucose increased [Recovered/Resolved]
  - Sluggishness [Recovered/Resolved]
  - Dyspnoea [Recovered/Resolved]
  - Swelling face [Recovered/Resolved]
  - Weight decreased [Recovered/Resolved]
